FAERS Safety Report 18636403 (Version 1)
Quarter: 2020Q4

REPORT INFORMATION
  Report Type: Report from Study
  Country: US (occurrence: US)
  Receive Date: 20201218
  Receipt Date: 20201218
  Transmission Date: 20210114
  Serious: No
  Sender: FDA-Public Use
  Company Number: US-REGENERON PHARMACEUTICALS, INC.-2020-39007

PATIENT

DRUGS (1)
  1. EYLEA [Suspect]
     Active Substance: AFLIBERCEPT
     Indication: OPEN ANGLE GLAUCOMA
     Dosage: 2 MG/0.05 ML, LEFT EYE, EVERY 4 WEEKS
     Route: 031
     Dates: start: 202005

REACTIONS (3)
  - Eye disorder [Not Recovered/Not Resolved]
  - Vision blurred [Unknown]
  - Off label use [Unknown]
